FAERS Safety Report 4717833-4 (Version None)
Quarter: 2005Q3

REPORT INFORMATION
  Report Type: 
  Country: None (occurrence: None)
  Receive Date: 20050718
  Receipt Date: 20041222
  Transmission Date: 20060218
  Serious: No
  Sender: FDA-Public Use
  Company Number: 2004001012

PATIENT
  Age: 68 Year
  Sex: Female
  Weight: 100.2449 kg

DRUGS (9)
  1. TARCEVA [Suspect]
     Indication: NON-SMALL CELL LUNG CANCER
     Dosage: 150MG (QD), ORAL
     Route: 048
     Dates: start: 20041210
  2. FUROSEMIDE [Concomitant]
  3. INSULIN GLARGINE [Concomitant]
  4. FLUOXETINE HCL [Concomitant]
  5. ESOMEPRAZOLE [Concomitant]
  6. FENTANYL [Concomitant]
  7. LOSARTAN POTASSIUM [Concomitant]
  8. ATORVASTATIN CALCIUM [Concomitant]
  9. INSULIN LISPRO [Concomitant]

REACTIONS (2)
  - FEELING ABNORMAL [None]
  - MEMORY IMPAIRMENT [None]
